FAERS Safety Report 26165863 (Version 1)
Quarter: 2025Q4

REPORT INFORMATION
  Report Type: Spontaneous
  Country: EU (occurrence: EU)
  Receive Date: 20251216
  Receipt Date: 20251216
  Transmission Date: 20260118
  Serious: Yes (Hospitalization, Other)
  Sender: NOVO NORDISK
  Company Number: EU-NOVOPROD-1582469

PATIENT
  Sex: Female
  Weight: 51.8 kg

DRUGS (1)
  1. WEGOVY [Suspect]
     Active Substance: SEMAGLUTIDE
     Indication: Weight control
     Dosage: 0.25 MG

REACTIONS (5)
  - Anorexia nervosa [Unknown]
  - Suicidal ideation [Unknown]
  - Panic attack [Unknown]
  - Weight decreased [Recovered/Resolved]
  - Intentional product misuse [Unknown]
